FAERS Safety Report 25131231 (Version 1)
Quarter: 2025Q1

REPORT INFORMATION
  Report Type: Report from Study
  Country: US (occurrence: US)
  Receive Date: 20250327
  Receipt Date: 20250327
  Transmission Date: 20250409
  Serious: Yes (Other)
  Sender: TEVA
  Company Number: US-TEVA-VS-3310690

PATIENT
  Age: 56 Year
  Sex: Female

DRUGS (6)
  1. AUSTEDO XR [Suspect]
     Active Substance: DEUTETRABENAZINE
     Indication: Bipolar I disorder
     Route: 048
  2. AUSTEDO XR [Suspect]
     Active Substance: DEUTETRABENAZINE
     Indication: Bipolar I disorder
     Route: 048
  3. SPIRONOLACTONE [Concomitant]
     Active Substance: SPIRONOLACTONE
     Indication: Product used for unknown indication
  4. Estradioli valeras [Concomitant]
     Indication: Product used for unknown indication
     Route: 065
  5. GABAPENTIN [Concomitant]
     Active Substance: GABAPENTIN
     Indication: Product used for unknown indication
     Route: 065
  6. PROGESTERONE [Concomitant]
     Active Substance: PROGESTERONE
     Indication: Product used for unknown indication
     Route: 065

REACTIONS (7)
  - Dyskinesia [Not Recovered/Not Resolved]
  - Product use in unapproved indication [Unknown]
  - Paranasal sinus discomfort [Not Recovered/Not Resolved]
  - Laboratory test abnormal [Not Recovered/Not Resolved]
  - Product dose omission issue [Not Recovered/Not Resolved]
  - Dysarthria [Not Recovered/Not Resolved]
  - Feeling abnormal [Not Recovered/Not Resolved]
